FAERS Safety Report 9979054 (Version 1)
Quarter: 2014Q1

REPORT INFORMATION
  Report Type: Report from Study
  Country: US (occurrence: US)
  Receive Date: 20140306
  Receipt Date: 20140306
  Transmission Date: 20141002
  Serious: No
  Sender: FDA-Public Use
  Company Number: US-ABBVIE-13P-163-1173815-00

PATIENT
  Sex: Male
  Weight: 146.19 kg

DRUGS (31)
  1. HUMIRA [Suspect]
     Indication: CROHN^S DISEASE
     Dosage: LOADING DOSE
     Route: 058
     Dates: start: 20090504, end: 20090504
  2. HUMIRA [Suspect]
     Dosage: SECOND DOSE
     Dates: start: 2009, end: 2009
  3. HUMIRA [Suspect]
     Dates: start: 2009
  4. CETIRIZINE [Concomitant]
     Indication: SEASONAL ALLERGY
  5. CLONAZEPAM [Concomitant]
     Indication: MUSCLE SPASMS
  6. NORCO [Concomitant]
     Indication: BACK PAIN
  7. PENTASA [Concomitant]
     Indication: CROHN^S DISEASE
  8. LOVAZA [Concomitant]
     Indication: VITAMIN SUPPLEMENTATION
  9. AVINZA [Concomitant]
     Indication: BACK PAIN
  10. SIMVASTATIN [Concomitant]
     Indication: BLOOD CHOLESTEROL INCREASED
  11. PROPRANOLOL [Concomitant]
     Indication: MIGRAINE
  12. FLONASE [Concomitant]
     Indication: SEASONAL ALLERGY
  13. VICTOZA [Concomitant]
     Indication: DIABETES MELLITUS
  14. DESIPRAMINE [Concomitant]
     Indication: ANTIDEPRESSANT THERAPY
  15. LANTUS [Concomitant]
     Indication: DIABETES MELLITUS
  16. DICYCLOMINE [Concomitant]
     Indication: CROHN^S DISEASE
  17. NEXIUM [Concomitant]
     Indication: GASTROOESOPHAGEAL REFLUX DISEASE
  18. VITAMIN D [Concomitant]
     Indication: VITAMIN D DEFICIENCY
  19. WARFARIN [Concomitant]
     Indication: PRODUCT USED FOR UNKNOWN INDICATION
  20. HCTZ [Concomitant]
     Indication: PRODUCT USED FOR UNKNOWN INDICATION
  21. SAVELLA [Concomitant]
     Indication: NEUROPATHY PERIPHERAL
  22. ALBUTEROL [Concomitant]
     Indication: ASTHMA
  23. ALBUTEROL [Concomitant]
     Indication: CHRONIC OBSTRUCTIVE PULMONARY DISEASE
  24. SYMBICORT [Concomitant]
     Indication: ASTHMA
  25. SYMBICORT [Concomitant]
     Indication: CHRONIC OBSTRUCTIVE PULMONARY DISEASE
  26. COMPAZINE [Concomitant]
     Indication: NAUSEA
  27. MONTELUKAST [Concomitant]
     Indication: ASTHMA
  28. MULTIVITAMIN [Concomitant]
     Indication: VITAMIN SUPPLEMENTATION
  29. INDERAL [Concomitant]
     Indication: HYPERTENSION
  30. BENTYL [Concomitant]
     Indication: ABDOMINAL PAIN
  31. COUMADIN [Concomitant]
     Indication: ANTICOAGULANT THERAPY

REACTIONS (4)
  - Dysuria [Not Recovered/Not Resolved]
  - Pollakiuria [Not Recovered/Not Resolved]
  - Insomnia [Not Recovered/Not Resolved]
  - Dry mouth [Not Recovered/Not Resolved]
